FAERS Safety Report 7056624-9 (Version None)
Quarter: 2010Q4

REPORT INFORMATION
  Report Type: 
  Country: None (occurrence: None)
  Receive Date: 20101018
  Receipt Date: 20101002
  Transmission Date: 20110411
  Serious: Yes (Hospitalization, Other)
  Sender: FDA-Public Use
  Company Number: 2010AP002124

PATIENT
  Age: 65 Year
  Sex: Male

DRUGS (1)
  1. CLARITHROMYCIN [Suspect]
     Indication: COUGH

REACTIONS (11)
  - COLLAPSE OF LUNG [None]
  - DYSPNOEA [None]
  - EOSINOPHILIA [None]
  - GLOMERULONEPHRITIS MINIMAL LESION [None]
  - JOINT SWELLING [None]
  - LUNG CONSOLIDATION [None]
  - OEDEMA [None]
  - PYREXIA [None]
  - RASH ERYTHEMATOUS [None]
  - RASH PRURITIC [None]
  - TUBULOINTERSTITIAL NEPHRITIS [None]
